FAERS Safety Report 13299261 (Version 1)
Quarter: 2017Q1

REPORT INFORMATION
  Report Type: Report from Study
  Country: FR (occurrence: FR)
  Receive Date: 20170306
  Receipt Date: 20170306
  Transmission Date: 20170428
  Serious: Yes (Hospitalization)
  Sender: FDA-Public Use
  Company Number: FR-TEVA-730679ACC

PATIENT
  Age: 79 Year
  Sex: Male
  Weight: 123.5 kg

DRUGS (13)
  1. TAHOR [Concomitant]
     Active Substance: ATORVASTATIN CALCIUM
     Indication: DYSLIPIDAEMIA
     Dosage: 10 MILLIGRAM DAILY;
     Route: 048
     Dates: start: 20150629
  2. ZOLPIDEM [Concomitant]
     Active Substance: ZOLPIDEM\ZOLPIDEM TARTRATE
     Indication: MENTAL DISORDER
     Dosage: 10 MILLIGRAM DAILY;
     Route: 048
  3. ORAP [Concomitant]
     Active Substance: PIMOZIDE
     Indication: MENTAL DISORDER
     Dosage: 1 MILLIGRAM DAILY; 1MG EVENING
     Route: 048
  4. DEPAKINE [Concomitant]
     Active Substance: VALPROATE SODIUM
     Indication: EPILEPSY
     Dosage: 1000 MILLIGRAM DAILY;
     Route: 048
  5. ORAP [Concomitant]
     Active Substance: PIMOZIDE
     Dosage: 1 MILLIGRAM DAILY; 1MG NOON
     Route: 048
  6. WARFARIN [Suspect]
     Active Substance: WARFARIN
     Route: 048
     Dates: start: 20160629
  7. PLAVIX [Concomitant]
     Active Substance: CLOPIDOGREL BISULFATE
     Indication: ACUTE CORONARY SYNDROME
     Dosage: 75 MILLIGRAM DAILY;
     Route: 048
     Dates: start: 20150623
  8. UVEDOSE - VITAMIN D [Concomitant]
     Dosage: 100000 IU (INTERNATIONAL UNIT) DAILY;
     Route: 048
  9. ALPRAZOLAM. [Concomitant]
     Active Substance: ALPRAZOLAM
     Indication: MENTAL DISORDER
     Dosage: .25 MILLIGRAM DAILY;
     Route: 048
  10. AMIODARONE [Concomitant]
     Active Substance: AMIODARONE
     Indication: ACUTE CORONARY SYNDROME
     Dosage: 200 MILLIGRAM DAILY;
     Route: 048
     Dates: start: 20150729
  11. WARFARIN [Suspect]
     Active Substance: WARFARIN
     Indication: ACUTE CORONARY SYNDROME
     Route: 048
     Dates: start: 20150629
  12. BISOCE [Concomitant]
     Active Substance: BISOPROLOL
     Indication: ACUTE CORONARY SYNDROME
     Dosage: 1.25 MILLIGRAM DAILY;
     Route: 048
     Dates: start: 20150626
  13. RAMIPRIL. [Concomitant]
     Active Substance: RAMIPRIL
     Indication: ACUTE CORONARY SYNDROME
     Dosage: 2.5 MILLIGRAM DAILY;
     Route: 048
     Dates: start: 20150626

REACTIONS (4)
  - Haematuria [Recovered/Resolved]
  - Sleep apnoea syndrome [Not Recovered/Not Resolved]
  - Anaemia [Not Recovered/Not Resolved]
  - Vitamin D deficiency [Not Recovered/Not Resolved]

NARRATIVE: CASE EVENT DATE: 20161021
